FAERS Safety Report 15448262 (Version 6)
Quarter: 2019Q3

REPORT INFORMATION
  Report Type: Report from Study
  Country: US (occurrence: US)
  Receive Date: 20180929
  Receipt Date: 20190711
  Transmission Date: 20191004
  Serious: No
  Sender: FDA-Public Use
  Company Number: PHEH2018US039735

PATIENT
  Sex: Male

DRUGS (3)
  1. ENTRESTO [Suspect]
     Active Substance: SACUBITRIL\VALSARTAN
     Dosage: 1 DF, (SACUBITRIL 24 MG/ VALSARTAN 26 MG)
     Route: 048
  2. ENTRESTO [Suspect]
     Active Substance: SACUBITRIL\VALSARTAN
     Indication: CARDIAC FAILURE
     Dosage: 1 DF, (SACUBITRIL 49 MG/ VALSARTAN 51 MG)
     Route: 048
  3. ENTRESTO [Suspect]
     Active Substance: SACUBITRIL\VALSARTAN
     Dosage: 1 DF, (49 MG OF SACUBITRIL AND 51 MG OF VALSARTAN)
     Route: 048

REACTIONS (7)
  - Dyspnoea [Unknown]
  - Dizziness [Unknown]
  - Renal function test abnormal [Unknown]
  - Weight fluctuation [Unknown]
  - Gait disturbance [Unknown]
  - Asthenia [Unknown]
  - Blood pressure decreased [Unknown]
